FAERS Safety Report 4575854-9 (Version None)
Quarter: 2005Q1

REPORT INFORMATION
  Report Type: 
  Country: None (occurrence: None)
  Receive Date: 20050209
  Receipt Date: 20041109
  Transmission Date: 20050727
  Serious: Yes (Life-Threatening, Hospitalization, Disabling)
  Sender: FDA-Public Use
  Company Number: US-MERCK-0411USA01627

PATIENT
  Age: 72 Year
  Sex: Female

DRUGS (5)
  1. VIOXX [Suspect]
     Indication: ARTHRITIS
     Route: 048
     Dates: start: 20020624, end: 20040930
  2. FUROSEMIDE [Concomitant]
     Route: 065
  3. TARKA [Concomitant]
     Route: 065
  4. PROVENTIL [Concomitant]
     Route: 065
  5. PULMICORT [Concomitant]
     Route: 065

REACTIONS (1)
  - CARDIAC FAILURE CONGESTIVE [None]
